FAERS Safety Report 7112924-5 (Version None)
Quarter: 2010Q4

REPORT INFORMATION
  Report Type: 
  Country: None (occurrence: None)
  Receive Date: 20101119
  Receipt Date: 20101115
  Transmission Date: 20110411
  Serious: Yes (Death, Other)
  Sender: FDA-Public Use
  Company Number: US-PFIZER INC-2010124515

PATIENT
  Sex: Male
  Weight: 96.145 kg

DRUGS (6)
  1. CHANTIX [Suspect]
     Indication: SMOKING CESSATION THERAPY
     Dosage: UNK
     Route: 048
     Dates: start: 20080101
  2. CHANTIX [Suspect]
     Dosage: 1 MG, 2X/DAY
     Dates: start: 20100101
  3. ALLOPURINOL [Concomitant]
     Dosage: 300 MG, 1X/DAY
  4. METOPROLOL TARTRATE [Concomitant]
     Dosage: 25 MG, 1X/DAY
  5. LOTREL [Concomitant]
     Dosage: 5/20 MG DAILY
  6. ZOCOR [Concomitant]
     Dosage: 20 MG, 1X/DAY

REACTIONS (6)
  - BLOOD CHOLESTEROL INCREASED [None]
  - BLOOD TRIGLYCERIDES INCREASED [None]
  - COMPLETED SUICIDE [None]
  - HYPERLIPIDAEMIA [None]
  - HYPERTENSION [None]
  - HYPERURICAEMIA [None]
